FAERS Safety Report 12792893 (Version 1)
Quarter: 2016Q3

REPORT INFORMATION
  Report Type: Spontaneous
  Country: US (occurrence: US)
  Receive Date: 20160929
  Receipt Date: 20160929
  Transmission Date: 20161109
  Serious: No
  Sender: FDA-Public Use
  Company Number: US-JAZZ-2016-US-011831

PATIENT
  Age: 54 Year
  Sex: Male

DRUGS (7)
  1. TYLENOL EXTRA STRENGTH [Concomitant]
     Active Substance: ACETAMINOPHEN
  2. VITAMIN D3 [Concomitant]
     Active Substance: CHOLECALCIFEROL
  3. XYREM [Suspect]
     Active Substance: SODIUM OXYBATE
     Indication: INSOMNIA
     Dosage: 1.5 G, BID
     Route: 048
     Dates: start: 201606
  4. KLONOPIN [Concomitant]
     Active Substance: CLONAZEPAM
  5. ASPIRIN EC [Concomitant]
     Active Substance: ASPIRIN
  6. DOXEPIN [Concomitant]
     Active Substance: DOXEPIN
  7. NIACIN. [Concomitant]
     Active Substance: NIACIN

REACTIONS (4)
  - Tremor [Not Recovered/Not Resolved]
  - Neuralgia [Unknown]
  - Neck injury [Unknown]
  - Anxiety [Not Recovered/Not Resolved]

NARRATIVE: CASE EVENT DATE: 201606
